FAERS Safety Report 5601894-4 (Version None)
Quarter: 2008Q1

REPORT INFORMATION
  Report Type: 
  Country: None (occurrence: None)
  Receive Date: 20080108
  Receipt Date: 20071107
  Transmission Date: 20080703
  Serious: Yes (Hospitalization)
  Sender: FDA-Public Use
  Company Number: DICAS-07-0793

PATIENT
  Age: 69 Year
  Sex: Male
  Weight: 75.4 kg

DRUGS (6)
  1. DIPRIVAN [Suspect]
     Indication: TRANSURETHRAL PROSTATECTOMY
     Dosage: DOSE RESTARTED ON 06SEP07 (X1) INTRAVENOUS
     Route: 042
     Dates: start: 20070905, end: 20070906
  2. FENTANYL [Concomitant]
  3. ONDANSETRON HCL [Concomitant]
  4. ACETAMINOPHEN [Concomitant]
  5. GENTAMICIN [Concomitant]
  6. MIDAZOLAM HCL [Concomitant]

REACTIONS (1)
  - ANAPHYLACTIC REACTION [None]
